FAERS Safety Report 14813075 (Version 1)
Quarter: 2018Q2

REPORT INFORMATION
  Report Type: Spontaneous
  Country: FR (occurrence: FR)
  Receive Date: 20180426
  Receipt Date: 20180426
  Transmission Date: 20180711
  Serious: Yes (Other)
  Sender: FDA-Public Use
  Company Number: FR-MERCK KGAA-2046548

PATIENT
  Age: 38 Year
  Sex: Female

DRUGS (1)
  1. NOVOTHYROX [Suspect]
     Active Substance: LEVOTHYROXINE SODIUM
     Indication: BASEDOW^S DISEASE

REACTIONS (27)
  - Panic attack [Recovering/Resolving]
  - Depression [Recovering/Resolving]
  - Impaired driving ability [Recovering/Resolving]
  - Mean platelet volume increased [Recovering/Resolving]
  - Social problem [Recovering/Resolving]
  - Anxiety [Recovering/Resolving]
  - Fatigue [Recovering/Resolving]
  - Apathy [Recovering/Resolving]
  - Housebound [Recovering/Resolving]
  - Loss of personal independence in daily activities [Recovering/Resolving]
  - Dizziness [Recovering/Resolving]
  - Muscle spasms [Recovering/Resolving]
  - Insomnia [Recovering/Resolving]
  - Depressed mood [Recovering/Resolving]
  - Weight decreased [Recovering/Resolving]
  - Stress [Recovering/Resolving]
  - Malaise [Recovering/Resolving]
  - Decreased appetite [Recovering/Resolving]
  - Loss of libido [Recovering/Resolving]
  - Nausea [Recovering/Resolving]
  - Loss of consciousness [Recovering/Resolving]
  - Vertigo [Recovering/Resolving]
  - Impaired work ability [Recovering/Resolving]
  - Thyroxine free increased [Recovering/Resolving]
  - Fear [Recovering/Resolving]
  - Lipase increased [Recovering/Resolving]
  - Asthenia [Recovering/Resolving]

NARRATIVE: CASE EVENT DATE: 20170217
